FAERS Safety Report 7240102-8 (Version None)
Quarter: 2011Q1

REPORT INFORMATION
  Report Type: 
  Country: None (occurrence: None)
  Receive Date: 20110113
  Receipt Date: 20101229
  Transmission Date: 20110831
  Serious: Yes (Other)
  Sender: FDA-Public Use
  Company Number: AUR-APL-2011-00056

PATIENT
  Age: 85 Year
  Sex: Male

DRUGS (2)
  1. AMLODIPINE [Suspect]
     Dosage: 10MG
  2. LISINOPRIL [Suspect]
     Dosage: 20MG

REACTIONS (2)
  - BLOOD PRESSURE INADEQUATELY CONTROLLED [None]
  - BLOOD PRESSURE INCREASED [None]
